FAERS Safety Report 6061654-X (Version None)
Quarter: 2009Q1

REPORT INFORMATION
  Report Type: 
  Country: None (occurrence: None)
  Receive Date: 20090202
  Receipt Date: 20090126
  Transmission Date: 20090719
  Serious: Yes (Hospitalization)
  Sender: FDA-Public Use
  Company Number: B0542455A

PATIENT
  Age: 72 Year
  Sex: Male
  Weight: 102.7 kg

DRUGS (2)
  1. ROSIGLITAZONE [Suspect]
     Dosage: 4MG PER DAY
     Route: 048
     Dates: start: 20030407
  2. METFORMIN HCL [Concomitant]
     Dosage: 1700MG PER DAY
     Route: 048
     Dates: start: 20020528

REACTIONS (4)
  - ATRIAL FIBRILLATION [None]
  - CARDIAC FAILURE CONGESTIVE [None]
  - DYSPNOEA [None]
  - OEDEMA [None]
